FAERS Safety Report 12680330 (Version 1)
Quarter: 2016Q3

REPORT INFORMATION
  Report Type: Spontaneous
  Country: US (occurrence: None)
  Receive Date: 20160823
  Receipt Date: 20160823
  Transmission Date: 20161109
  Serious: Yes (Hospitalization)
  Sender: FDA-Public Use
  Company Number: None

PATIENT
  Age: 51 Year
  Sex: Male
  Weight: 77.4 kg

DRUGS (2)
  1. IODIXANOL [Suspect]
     Active Substance: IODIXANOL
     Indication: IMAGING PROCEDURE
     Route: 042
     Dates: start: 20160727, end: 20160727
  2. AMIODARONE [Suspect]
     Active Substance: AMIODARONE
     Indication: VENTRICULAR FIBRILLATION
     Route: 042
     Dates: start: 20160727, end: 20160727

REACTIONS (3)
  - Rash [None]
  - Pruritus [None]
  - Eosinophilia [None]

NARRATIVE: CASE EVENT DATE: 20160728
